FAERS Safety Report 10628527 (Version 1)
Quarter: 2014Q4

REPORT INFORMATION
  Report Type: Spontaneous
  Country: US (occurrence: US)
  Receive Date: 20141205
  Receipt Date: 20141205
  Transmission Date: 20150529
  Serious: No
  Sender: FDA-Public Use
  Company Number: US-BRISTOL-MYERS SQUIBB COMPANY-19905140

PATIENT
  Age: 59 Year
  Sex: Female
  Weight: 120.18 kg

DRUGS (8)
  1. METHOTREXATE [Concomitant]
     Active Substance: METHOTREXATE
     Indication: PSORIASIS
     Dates: start: 201309
  2. ATORVASTATIN [Concomitant]
     Active Substance: ATORVASTATIN
  3. CELEXA [Concomitant]
     Active Substance: CITALOPRAM HYDROBROMIDE
  4. AMARYL [Concomitant]
     Active Substance: GLIMEPIRIDE
  5. KOMBIGLYZE XR [Suspect]
     Active Substance: METFORMIN HYDROCHLORIDE\SAXAGLIPTIN HYDROCHLORIDE
     Indication: DIABETES MELLITUS
     Dosage: 1DF=KOMBIGLYZE XR 2.5MG/1000MG ?INC TO BID IN JULY 2013
  6. DIOVAN HCT [Concomitant]
     Active Substance: HYDROCHLOROTHIAZIDE\VALSARTAN
     Dosage: 1DF=80MG/12.5MG
  7. HYDROXYUREA. [Concomitant]
     Active Substance: HYDROXYUREA
     Dates: start: 201310
  8. POTASSIUM [Concomitant]
     Active Substance: POTASSIUM

REACTIONS (3)
  - Diarrhoea [Unknown]
  - Pharyngitis streptococcal [Unknown]
  - Sinusitis [Unknown]
